FAERS Safety Report 5250459-5 (Version None)
Quarter: 2007Q1

REPORT INFORMATION
  Report Type: 
  Country: None (occurrence: None)
  Receive Date: 20070228
  Receipt Date: 20060427
  Transmission Date: 20070707
  Serious: No
  Sender: FDA-Public Use
  Company Number: US-GLAXOSMITHKLINE-A0602205A

PATIENT
  Age: 45 Year
  Sex: Female
  Weight: 50 kg

DRUGS (4)
  1. LAMICTAL [Suspect]
     Indication: BIPOLAR DISORDER
     Dosage: 100MG PER DAY
     Route: 048
     Dates: end: 20060418
  2. WELLBUTRIN XL [Concomitant]
     Dosage: 300MG PER DAY
     Route: 048
  3. AMBIEN [Concomitant]
     Route: 048
  4. ATIVAN [Concomitant]
     Route: 048

REACTIONS (1)
  - RASH MACULO-PAPULAR [None]
